FAERS Safety Report 7704376-9 (Version None)
Quarter: 2011Q3

REPORT INFORMATION
  Report Type: 
  Country: None (occurrence: None)
  Receive Date: 20110823
  Receipt Date: 20110818
  Transmission Date: 20111222
  Serious: Yes (Disabling)
  Sender: FDA-Public Use
  Company Number: US-MERCK-1107USA01845

PATIENT
  Age: 43 Year
  Sex: Female
  Weight: 106 kg

DRUGS (6)
  1. KLONOPIN [Concomitant]
     Route: 048
  2. LISINOPRIL [Concomitant]
     Route: 048
  3. JANUVIA [Suspect]
     Route: 048
     Dates: end: 20110520
  4. JANUVIA [Suspect]
     Indication: DIABETES MELLITUS
     Route: 048
     Dates: start: 20110329
  5. SYNTHROID [Concomitant]
     Route: 048
  6. METFORMIN HCL [Suspect]
     Route: 048

REACTIONS (1)
  - VISION BLURRED [None]
